FAERS Safety Report 6413960-4 (Version None)
Quarter: 2009Q4

REPORT INFORMATION
  Report Type: 
  Country: None (occurrence: None)
  Receive Date: 20091026
  Receipt Date: 20091021
  Transmission Date: 20100525
  Serious: Yes (Death, Other)
  Sender: FDA-Public Use
  Company Number: JP-JNJFOC-20090905273

PATIENT
  Sex: Male
  Weight: 50 kg

DRUGS (25)
  1. RISPERDAL CONSTA [Suspect]
     Route: 030
  2. RISPERDAL CONSTA [Suspect]
     Route: 030
  3. RISPERDAL CONSTA [Suspect]
     Route: 030
  4. RISPERDAL CONSTA [Suspect]
     Route: 030
  5. RISPERDAL CONSTA [Suspect]
     Indication: SCHIZOPHRENIA
     Route: 030
  6. RISPERDAL [Suspect]
     Route: 048
  7. RISPERDAL [Suspect]
     Route: 048
  8. RISPERDAL [Suspect]
     Route: 048
  9. RISPERDAL [Suspect]
     Indication: SCHIZOPHRENIA
     Route: 048
  10. LITHIUM CARNONATE [Concomitant]
     Indication: SCHIZOPHRENIA
     Route: 048
  11. MAGMITT [Concomitant]
     Indication: GASTRIC ULCER
     Route: 048
  12. AKIRIDEN [Concomitant]
     Indication: PARKINSONISM
     Route: 048
  13. TRIHEXYPHENIDYL HCL [Concomitant]
     Indication: PARKINSONISM
     Route: 048
  14. CONTOMIN [Concomitant]
     Indication: SCHIZOPHRENIA
     Route: 048
  15. BICAMOL [Concomitant]
     Indication: PARKINSONISM
     Route: 048
  16. TRIHEXYPHENIDYL HCL [Concomitant]
     Indication: PARKINSONISM
     Route: 048
  17. GAMOFA [Concomitant]
     Indication: GASTRIC ULCER
     Route: 048
  18. MAGNESIUM OXIDE [Concomitant]
     Indication: CONSTIPATION
     Route: 048
  19. ZYPREXA [Concomitant]
     Indication: SCHIZOPHRENIA
     Route: 048
  20. VEGETAMIN-A [Concomitant]
     Indication: INSOMNIA
     Route: 048
  21. LOXONIN [Concomitant]
     Route: 062
  22. GARASONE [Concomitant]
     Indication: PSORIASIS
     Route: 061
  23. ANTEBATE [Concomitant]
     Indication: PSORIASIS
     Route: 061
  24. OXAROL [Concomitant]
     Indication: PSORIASIS
     Route: 061
  25. GASTER D [Concomitant]
     Indication: GASTRIC ULCER
     Route: 048

REACTIONS (13)
  - ALTERED STATE OF CONSCIOUSNESS [None]
  - BLOOD CHLORIDE INCREASED [None]
  - BLOOD SODIUM INCREASED [None]
  - DECREASED APPETITE [None]
  - DEHYDRATION [None]
  - DIZZINESS [None]
  - GAIT DISTURBANCE [None]
  - GASTRIC PERFORATION [None]
  - GASTRIC ULCER [None]
  - HYPOTENSION [None]
  - INADEQUATE DIET [None]
  - PYREXIA [None]
  - SHOCK HAEMORRHAGIC [None]
